FAERS Safety Report 7316360-8 (Version None)
Quarter: 2011Q1

REPORT INFORMATION
  Report Type: 
  Country: None (occurrence: None)
  Receive Date: 20110225
  Receipt Date: 20110114
  Transmission Date: 20110831
  Serious: Yes (Death, Hospitalization, Disabling, Other)
  Sender: FDA-Public Use
  Company Number: GB-ASTRAZENECA-2010SE54873

PATIENT
  Age: 888 Month
  Sex: Female

DRUGS (4)
  1. DEXAMETHASONE [Concomitant]
     Indication: METASTASES TO CENTRAL NERVOUS SYSTEM
     Route: 048
     Dates: start: 20100701
  2. IRESSA [Suspect]
     Indication: NON-SMALL CELL LUNG CANCER
     Route: 048
     Dates: start: 20100814, end: 20100801
  3. OMEPRAZOLE [Concomitant]
     Indication: PROPHYLAXIS AGAINST GASTROINTESTINAL ULCER
     Route: 048
     Dates: start: 20100701
  4. IRESSA [Suspect]
     Route: 048
     Dates: start: 20100824

REACTIONS (8)
  - DISEASE PROGRESSION [None]
  - CONFUSIONAL STATE [None]
  - HEMIPLEGIA [None]
  - DYSARTHRIA [None]
  - MALAISE [None]
  - ASTHENIA [None]
  - HEPATIC CYST [None]
  - SOMNOLENCE [None]
